FAERS Safety Report 9935378 (Version 1)
Quarter: 2014Q1

REPORT INFORMATION
  Report Type: Spontaneous
  Country: US (occurrence: US)
  Receive Date: 20140228
  Receipt Date: 20140228
  Transmission Date: 20141002
  Serious: No
  Sender: FDA-Public Use
  Company Number: US-PFIZER INC-2014055804

PATIENT
  Age: 54 Year
  Sex: Female

DRUGS (1)
  1. INLYTA [Suspect]
     Indication: RENAL CANCER
     Dosage: 5 MG, EVERY 12 HOURS
     Dates: start: 20131111

REACTIONS (2)
  - Blister [Unknown]
  - Decreased appetite [Unknown]
